FAERS Safety Report 11847007 (Version 1)
Quarter: 2015Q4

REPORT INFORMATION
  Report Type: Spontaneous
  Country: US (occurrence: US)
  Receive Date: 20151217
  Receipt Date: 20151217
  Transmission Date: 20160305
  Serious: No
  Sender: FDA-Public Use
  Company Number: US-ROCHE-250399

PATIENT
  Sex: Male
  Weight: 76.2 kg

DRUGS (13)
  1. ZYRTEC [Concomitant]
     Active Substance: CETIRIZINE HYDROCHLORIDE
     Indication: HYPERSENSITIVITY
     Route: 065
  2. ORNADE [Concomitant]
     Active Substance: CHLORPHENIRAMINE MALEATE\PHENYLPROPANOLAMINE HYDROCHLORIDE
     Indication: NASAL CONGESTION
     Route: 065
  3. AMBIEN [Concomitant]
     Active Substance: ZOLPIDEM TARTRATE
     Indication: INSOMNIA
     Route: 065
  4. FLUMADINE [Concomitant]
     Active Substance: RIMANTADINE HYDROCHLORIDE
     Indication: ANTIVIRAL PROPHYLAXIS
     Dosage: TAKEN FOR 10 DAYS.
     Route: 065
  5. SINEQUAN [Concomitant]
     Active Substance: DOXEPIN HYDROCHLORIDE
     Indication: DEPRESSION
     Route: 065
  6. ZOCOR [Concomitant]
     Active Substance: SIMVASTATIN
     Indication: BLOOD CHOLESTEROL INCREASED
     Route: 065
  7. HUMIBID DM [Concomitant]
     Indication: COUGH
     Route: 065
  8. LEVAQUIN [Concomitant]
     Active Substance: LEVOFLOXACIN
     Indication: PHARYNGITIS
     Dosage: TOOK FOR 10 DAYS.
     Route: 065
  9. GUAIFENESIN/PSEUDOEPHEDRINE HYDROCHLORIDE [Concomitant]
     Indication: NASAL CONGESTION
     Route: 065
  10. FLONASE [Concomitant]
     Active Substance: FLUTICASONE PROPIONATE
     Indication: ILL-DEFINED DISORDER
     Dosage: DAILY DOSE=2 SPRAY
     Route: 065
  11. CLARITHROMYCIN. [Concomitant]
     Active Substance: CLARITHROMYCIN
     Indication: PHARYNGITIS
     Dosage: TAKEN FOR 2 DAYS AFTER LEVAQUIN.
     Route: 065
  12. TAMIFLU [Suspect]
     Active Substance: OSELTAMIVIR PHOSPHATE
     Indication: INFLUENZA
     Route: 048
     Dates: start: 20001120, end: 20001125
  13. TAMIFLU [Suspect]
     Active Substance: OSELTAMIVIR PHOSPHATE
     Route: 048

REACTIONS (1)
  - Influenza [Not Recovered/Not Resolved]

NARRATIVE: CASE EVENT DATE: 1999
